FAERS Safety Report 24286568 (Version 4)
Quarter: 2024Q3

REPORT INFORMATION
  Report Type: Spontaneous
  Country: US (occurrence: US)
  Receive Date: 20240905
  Receipt Date: 20240923
  Transmission Date: 20241016
  Serious: Yes (Hospitalization, Other)
  Sender: PFIZER
  Company Number: US-PFIZER INC-PV202400114756

PATIENT
  Age: 72 Year
  Sex: Male
  Weight: 92.986 kg

DRUGS (4)
  1. TIKOSYN [Suspect]
     Active Substance: DOFETILIDE
     Indication: Ventricular tachycardia
     Dosage: 125 UG, 2X/DAY (TAKE 2 TABLETS TWICE DAILY)
     Route: 048
  2. TIKOSYN [Suspect]
     Active Substance: DOFETILIDE
     Indication: Atrial fibrillation
     Dosage: TWO TABLETS TWICE DAILY
  3. TIKOSYN [Suspect]
     Active Substance: DOFETILIDE
     Dosage: 250 UG, 2X/DAY (1 CAP(S) ORALLY EVERY 12 HOURS)
     Route: 048
  4. MEXILETINE [Concomitant]
     Active Substance: MEXILETINE
     Dosage: 150 MG, EVERY 3 HOURS
     Route: 048

REACTIONS (2)
  - Ventricular tachycardia [Not Recovered/Not Resolved]
  - Off label use [Unknown]
